FAERS Safety Report 25125996 (Version 1)
Quarter: 2025Q1

REPORT INFORMATION
  Report Type: Spontaneous
  Country: FR (occurrence: FR)
  Receive Date: 20250326
  Receipt Date: 20250326
  Transmission Date: 20250409
  Serious: Yes (Life-Threatening)
  Sender: ELI LILLY AND COMPANY
  Company Number: None

PATIENT
  Age: 63 Year
  Sex: Male
  Weight: 59 kg

DRUGS (1)
  1. ERBITUX [Suspect]
     Active Substance: CETUXIMAB
     Indication: Lip and/or oral cavity cancer
     Route: 042
     Dates: start: 20250129, end: 20250129

REACTIONS (2)
  - Food allergy [Recovered/Resolved]
  - Anaphylactic shock [Recovered/Resolved]

NARRATIVE: CASE EVENT DATE: 20250129
